FAERS Safety Report 9076019 (Version 1)
Quarter: 2013Q1

REPORT INFORMATION
  Report Type: Report from Study
  Country: US (occurrence: US)
  Receive Date: 20130131
  Receipt Date: 20130131
  Transmission Date: 20140127
  Serious: No
  Sender: FDA-Public Use
  Company Number: US-ABBOTT-12P-163-1004776-00

PATIENT
  Age: 38 None
  Sex: Female
  Weight: 91.25 kg

DRUGS (1)
  1. HUMIRA [Suspect]
     Indication: HIDRADENITIS
     Dates: start: 20111007

REACTIONS (3)
  - Skin swelling [Not Recovered/Not Resolved]
  - Off label use [Not Recovered/Not Resolved]
  - Incorrect drug administration duration [Recovered/Resolved]
